FAERS Safety Report 4487591-X (Version None)
Quarter: 2004Q4

REPORT INFORMATION
  Report Type: 
  Country: None (occurrence: None)
  Receive Date: 20041027
  Receipt Date: 20041027
  Transmission Date: 20050328
  Serious: Yes (Life-Threatening, Hospitalization)
  Sender: FDA-Public Use
  Company Number: None

PATIENT
  Age: 14 Year
  Sex: Male
  Weight: 68.0396 kg

DRUGS (1)
  1. AMNESTEEM [Suspect]
     Indication: ACNE
     Dosage: 20 MG   TWICE A DAY   ORAL
     Route: 048
     Dates: start: 20040601, end: 20041011

REACTIONS (2)
  - INTENTIONAL OVERDOSE [None]
  - SUICIDE ATTEMPT [None]
